FAERS Safety Report 8433664-6 (Version None)
Quarter: 2012Q2

REPORT INFORMATION
  Report Type: 
  Country: None (occurrence: None)
  Receive Date: 20120323
  Receipt Date: 20110825
  Transmission Date: 20120825
  Serious: Yes (Hospitalization)
  Sender: FDA-Public Use
  Company Number: 163-21880-11070970

PATIENT
  Age: 77 Year
  Sex: Female
  Weight: 77.1115 kg

DRUGS (4)
  1. PREDNISONE TAB [Concomitant]
  2. REVLIMID [Suspect]
     Indication: MULTIPLE MYELOMA
     Dosage: 25 MG, DAILY X 21 DAYS, PO
     Route: 048
     Dates: start: 20110512, end: 20110707
  3. AREDIA [Concomitant]
  4. MELPHALAN HYDROCHLORIDE [Concomitant]

REACTIONS (1)
  - PANCYTOPENIA [None]
